FAERS Safety Report 11486627 (Version 10)
Quarter: 2016Q1

REPORT INFORMATION
  Report Type: Spontaneous
  Country: US (occurrence: US)
  Receive Date: 20150910
  Receipt Date: 20160310
  Transmission Date: 20160525
  Serious: No
  Sender: FDA-Public Use
  Company Number: US-PFIZER INC-2015285652

PATIENT
  Age: 71 Year
  Sex: Male
  Weight: 64 kg

DRUGS (19)
  1. SUTENT [Suspect]
     Active Substance: SUNITINIB MALATE
     Dosage: UNK
  2. SUTENT [Suspect]
     Active Substance: SUNITINIB MALATE
     Dosage: 37.5 MG, CYCLIC (2 WEEKS ON/1 WEEK OFF)
     Dates: start: 20160208, end: 20160217
  3. CLOPIDOGREL BISULFATE. [Concomitant]
     Active Substance: CLOPIDOGREL BISULFATE
     Indication: BLOOD DISORDER
     Dosage: 75 MG, 1X/DAY
     Route: 048
  4. IMODIUM A-D [Concomitant]
     Active Substance: LOPERAMIDE HYDROCHLORIDE
     Dosage: UNK
  5. SUTENT [Suspect]
     Active Substance: SUNITINIB MALATE
     Indication: RENAL CANCER METASTATIC
     Dosage: 50 MG, 1X/DAY
     Route: 048
     Dates: start: 20150802
  6. PRAVASTATIN [Concomitant]
     Active Substance: PRAVASTATIN\PRAVASTATIN SODIUM
     Dosage: UNK
  7. PLAVIX [Concomitant]
     Active Substance: CLOPIDOGREL BISULFATE
     Dosage: UNK
  8. SUTENT [Suspect]
     Active Substance: SUNITINIB MALATE
     Dosage: 37.5 MG, 1X/DAY (FOR 14 DAYS)
  9. PRAVASTATIN SODIUM. [Concomitant]
     Active Substance: PRAVASTATIN SODIUM
     Dosage: 40 MG, 1X/DAY
     Route: 048
  10. FENOFIBRATE MICRONIZED [Concomitant]
     Indication: BLOOD CHOLESTEROL
     Dosage: 134 MG, 1X/DAY
     Route: 048
  11. IMODIUM [Concomitant]
     Active Substance: LOPERAMIDE HYDROCHLORIDE
     Dosage: UNK
  12. ISOSORBIDE DINITRATE. [Concomitant]
     Active Substance: ISOSORBIDE DINITRATE
     Indication: CHEST PAIN
     Dosage: 30 MG, 1X/DAY
     Route: 048
  13. SUTENT [Suspect]
     Active Substance: SUNITINIB MALATE
     Dosage: 37.5 MG, CYCLIC (2 WEEKS ON/1 WEEK OFF)
  14. SUTENT [Suspect]
     Active Substance: SUNITINIB MALATE
     Dosage: 37.5 MG, CYCLIC (2 WEEKS ON/1 WEEK OFF)
     Dates: start: 20160117
  15. PRILOSEC [Concomitant]
     Active Substance: OMEPRAZOLE MAGNESIUM
     Dosage: UNK
  16. ASPIRIN. [Concomitant]
     Active Substance: ASPIRIN
     Dosage: UNK
  17. DIPHEN ATROP [Concomitant]
     Dosage: UNK
  18. SUTENT [Suspect]
     Active Substance: SUNITINIB MALATE
     Dosage: 37.5 MG, CYCLIC (28 DAYS ON/14 DAYS OFF)
     Dates: end: 20150824
  19. ISOSORBIDE. [Concomitant]
     Active Substance: ISOSORBIDE
     Dosage: UNK

REACTIONS (9)
  - Disease progression [Not Recovered/Not Resolved]
  - Blood pressure increased [Not Recovered/Not Resolved]
  - Neuropathy peripheral [Recovered/Resolved with Sequelae]
  - Renal cancer metastatic [Not Recovered/Not Resolved]
  - Diarrhoea [Recovered/Resolved with Sequelae]
  - Palmar-plantar erythrodysaesthesia syndrome [Recovered/Resolved with Sequelae]
  - Alopecia [Not Recovered/Not Resolved]
  - Hair colour changes [Unknown]
  - Eyelash discolouration [Unknown]

NARRATIVE: CASE EVENT DATE: 20150814
